FAERS Safety Report 4602256-9 (Version None)
Quarter: 2005Q2

REPORT INFORMATION
  Report Type: 
  Country: None (occurrence: None)
  Receive Date: 20050215
  Receipt Date: 20041207
  Transmission Date: 20051028
  Serious: Yes (Other)
  Sender: FDA-Public Use
  Company Number: 383310

PATIENT
  Age: 50 Year
  Sex: Male
  Weight: 83.9 kg

DRUGS (3)
  1. PEGASYS [Suspect]
     Indication: DRUG USE FOR UNKNOWN INDICATION
     Dosage: SUBCUTANEOUS
     Route: 058
  2. COPEGUS [Suspect]
     Indication: DRUG USE FOR UNKNOWN INDICATION
     Dosage: ORAL
     Route: 048
  3. PROZAC [Concomitant]

REACTIONS (7)
  - ANOREXIA [None]
  - DYSGEUSIA [None]
  - EAR PAIN [None]
  - HOMICIDAL IDEATION [None]
  - HYPOTRICHOSIS [None]
  - MOOD ALTERED [None]
  - PAIN [None]
